FAERS Safety Report 23989243 (Version 2)
Quarter: 2024Q3

REPORT INFORMATION
  Report Type: Spontaneous
  Country: CA (occurrence: CA)
  Receive Date: 20240619
  Receipt Date: 20240823
  Transmission Date: 20241017
  Serious: Yes (Other)
  Sender: NOVARTIS
  Company Number: CA-002147023-NVSC2024CA126883

PATIENT
  Age: 72 Year
  Sex: Male

DRUGS (1)
  1. DEFERASIROX [Suspect]
     Active Substance: DEFERASIROX
     Indication: Product used for unknown indication
     Dosage: 3 DOSAGE FORM, Q24H
     Route: 048

REACTIONS (3)
  - Pneumonia [Unknown]
  - Dry eye [Unknown]
  - Oedema peripheral [Unknown]
